FAERS Safety Report 13329429 (Version 1)
Quarter: 2017Q1

REPORT INFORMATION
  Report Type: Spontaneous
  Country: SE (occurrence: SE)
  Receive Date: 20170313
  Receipt Date: 20170313
  Transmission Date: 20170428
  Serious: Yes (Other)
  Sender: FDA-Public Use
  Company Number: SE-TEVA-745777ACC

PATIENT
  Age: 81 Year
  Sex: Female

DRUGS (22)
  1. FELODIPIN HEXAL [Concomitant]
     Active Substance: FELODIPINE
  2. DOXYCYKLIN 2CARE4 [Concomitant]
  3. SELOKENZOC [Concomitant]
     Active Substance: METOPROLOL SUCCINATE
  4. IMOVANE [Concomitant]
     Active Substance: ZOPICLONE
  5. BEHEPAN [Concomitant]
     Active Substance: HYDROXOCOBALAMIN
  6. LOSARTAN. [Concomitant]
     Active Substance: LOSARTAN
  7. WARAN [Interacting]
     Active Substance: WARFARIN SODIUM
     Indication: ATRIAL FIBRILLATION
     Route: 048
     Dates: start: 20090618, end: 20150206
  8. SPIRIVA [Concomitant]
     Active Substance: TIOTROPIUM BROMIDE MONOHYDRATE
  9. CITODON [Concomitant]
     Active Substance: ACETAMINOPHEN\CODEINE PHOSPHATE
  10. FOLACIN [Concomitant]
     Active Substance: FOLIC ACID
  11. VENTOLINE DISKUS [Concomitant]
  12. ALVEDON FORTE [Concomitant]
  13. OXYNORM [Concomitant]
     Active Substance: OXYCODONE HYDROCHLORIDE
  14. CITALOPRAM [Concomitant]
     Active Substance: CITALOPRAM HYDROBROMIDE
  15. DOXYFERM [Suspect]
     Active Substance: DOXYCYCLINE
     Indication: CHRONIC OBSTRUCTIVE PULMONARY DISEASE
     Dosage: 100 MG/DAG
     Route: 048
     Dates: start: 20141205, end: 20141214
  16. SAROTEN [Concomitant]
     Active Substance: AMITRIPTYLINE
  17. AMLODIPINE [Concomitant]
     Active Substance: AMLODIPINE BESYLATE
  18. FURIX [Concomitant]
     Active Substance: FUROSEMIDE
  19. BETAMETASON-NEOMYCIN I ESSEX KR?M APL [Concomitant]
  20. ACETYLCYSTEIN MEDA [Concomitant]
  21. SERETIDE [Concomitant]
     Active Substance: FLUTICASONE PROPIONATE\SALMETEROL XINAFOATE
  22. PREDNISOLON ALTERNOVA [Concomitant]
     Active Substance: PREDNISOLONE

REACTIONS (2)
  - Drug interaction [Recovered/Resolved]
  - International normalised ratio increased [Recovered/Resolved]

NARRATIVE: CASE EVENT DATE: 201412
